FAERS Safety Report 4603421-7 (Version None)
Quarter: 2005Q2

REPORT INFORMATION
  Report Type: 
  Country: None (occurrence: None)
  Receive Date: 20050223
  Receipt Date: 20041230
  Transmission Date: 20051028
  Serious: No
  Sender: FDA-Public Use
  Company Number: 211530

PATIENT
  Sex: Female

DRUGS (1)
  1. RAPTIVA [Suspect]
     Dosage: SUBCUTANEOUS
     Route: 058

REACTIONS (3)
  - GINGIVAL BLEEDING [None]
  - HYPOAESTHESIA [None]
  - MENORRHAGIA [None]
